FAERS Safety Report 7823261-5 (Version None)
Quarter: 2011Q4

REPORT INFORMATION
  Report Type: 
  Country: None (occurrence: None)
  Receive Date: 20111013
  Receipt Date: 20110927
  Transmission Date: 20120403
  Serious: Yes (Death, Life-Threatening, Hospitalization, Other)
  Sender: FDA-Public Use
  Company Number: 2011MA014507

PATIENT
  Age: 61 Year
  Sex: Female
  Weight: 66 kg

DRUGS (26)
  1. DESIPRAMINE HCL [Concomitant]
  2. HALOPERIDOL [Concomitant]
  3. MOMETASONE FUROATE [Concomitant]
  4. LORAZEPAM [Concomitant]
  5. TRAZODONE HYDROCHLORIDE [Concomitant]
  6. FLUCONAZOLE [Concomitant]
  7. CELECOXIB [Concomitant]
  8. CONJUGATED ESTROGEN [Concomitant]
  9. TRIMETHOPRIM [Concomitant]
  10. CYCLOBENZAPRINE [Concomitant]
  11. ALENDRONATE SODIUM [Concomitant]
  12. FUROSEMIDE [Concomitant]
  13. HYDROXYZINE [Concomitant]
  14. LEVOTHYROXINE SODIUM [Concomitant]
  15. OMEPRAZOLE [Concomitant]
  16. PREDNISONE [Concomitant]
  17. BUDESONIDE [Concomitant]
  18. SUMATRIPTAN SUCCINATE [Concomitant]
  19. RISPERIDONE [Suspect]
     Dosage: 5 MG;QD;PO
     Route: 048
  20. QUETIAPINE [Concomitant]
  21. VENLAFAXINE [Concomitant]
  22. HYDROXYCHLOROQUININE [Concomitant]
  23. ATORVASTATIN [Concomitant]
  24. LOPERAMIDE HCL [Concomitant]
  25. ALBUTEROL [Concomitant]
  26. SULFAMETHOXAZOLE [Concomitant]

REACTIONS (31)
  - MUSCLE RIGIDITY [None]
  - RENAL FAILURE [None]
  - PYREXIA [None]
  - PERIPHERAL COLDNESS [None]
  - MALAISE [None]
  - LIVEDO RETICULARIS [None]
  - RHABDOMYOLYSIS [None]
  - HAEMODYNAMIC INSTABILITY [None]
  - NOREPINEPHRINE INCREASED [None]
  - HAEMOGLOBIN INCREASED [None]
  - DEPRESSED LEVEL OF CONSCIOUSNESS [None]
  - ABDOMINAL DISTENSION [None]
  - ASPIRATION [None]
  - APALLIC SYNDROME [None]
  - FALL [None]
  - CYANOSIS [None]
  - ELECTROLYTE IMBALANCE [None]
  - DRUG LEVEL ABOVE THERAPEUTIC [None]
  - PAIN [None]
  - RESPIRATORY FAILURE [None]
  - 5-HYDROXYINDOLACETIC ACID IN URINE DECREASED [None]
  - NEUROLEPTIC MALIGNANT SYNDROME [None]
  - HYPOTENSION [None]
  - HEART RATE IRREGULAR [None]
  - SEPTIC SHOCK [None]
  - LEUKOCYTOSIS [None]
  - NORMETANEPHRINE URINE INCREASED [None]
  - SEROTONIN SYNDROME [None]
  - BREATH SOUNDS ABNORMAL [None]
  - ANXIETY [None]
  - METANEPHRINE URINE INCREASED [None]
